FAERS Safety Report 4866806-X (Version None)
Quarter: 2005Q4

REPORT INFORMATION
  Report Type: 
  Country: None (occurrence: None)
  Receive Date: 20051222
  Receipt Date: 20051213
  Transmission Date: 20060501
  Serious: Yes (Other)
  Sender: FDA-Public Use
  Company Number: 2005168568

PATIENT

DRUGS (2)
  1. VFEND [Suspect]
     Dosage: 4 MG/KG (1 IN 1D) INTRAVENOUS
     Route: 042
  2. MYLOTARG [Suspect]
     Dosage: INTRAVENOUS
     Route: 042

REACTIONS (4)
  - ALANINE AMINOTRANSFERASE INCREASED [None]
  - ASPARTATE AMINOTRANSFERASE INCREASED [None]
  - LIVER DISORDER [None]
  - PULMONARY VENO-OCCLUSIVE DISEASE [None]
